FAERS Safety Report 23312741 (Version 1)
Quarter: 2023Q4

REPORT INFORMATION
  Report Type: Spontaneous
  Country: US (occurrence: None)
  Receive Date: 20231219
  Receipt Date: 20231219
  Transmission Date: 20240110
  Serious: Yes (Other)
  Sender: FDA-Public Use
  Company Number: US-ROCHE-3473648

PATIENT
  Age: 23 Year
  Sex: Male

DRUGS (1)
  1. OCREVUS [Suspect]
     Active Substance: OCRELIZUMAB
     Indication: Product used for unknown indication
     Route: 065

REACTIONS (7)
  - Gastrointestinal disorder [Unknown]
  - Pruritus [Unknown]
  - Fatigue [Unknown]
  - Malaise [Unknown]
  - Alopecia [Unknown]
  - Irritability [Unknown]
  - Memory impairment [Unknown]
